FAERS Safety Report 8385716-7 (Version None)
Quarter: 2012Q2

REPORT INFORMATION
  Report Type: 
  Country: None (occurrence: None)
  Receive Date: 20120522
  Receipt Date: 20120522
  Transmission Date: 20120825
  Serious: Yes (Other)
  Sender: FDA-Public Use
  Company Number: None

PATIENT
  Sex: Female
  Weight: 92.0802 kg

DRUGS (1)
  1. ESCITALOPRAM OXALATE [Suspect]
     Indication: DEPRESSION
     Dosage: 20MG 2 TABS DAILY PO
     Route: 048
     Dates: start: 20120425

REACTIONS (6)
  - DRY MOUTH [None]
  - PRODUCT SUBSTITUTION ISSUE [None]
  - LIBIDO DECREASED [None]
  - FEELING ABNORMAL [None]
  - COUGH [None]
  - FLATULENCE [None]
